FAERS Safety Report 7139477-X (Version None)
Quarter: 2010Q4

REPORT INFORMATION
  Report Type: 
  Country: None (occurrence: None)
  Receive Date: 20101206
  Receipt Date: 20101206
  Transmission Date: 20110411
  Serious: Yes (Other)
  Sender: FDA-Public Use
  Company Number: US-PFIZER INC-2009280122

PATIENT
  Sex: Female
  Weight: 63.492 kg

DRUGS (25)
  1. TIKOSYN [Suspect]
     Indication: ATRIAL TACHYCARDIA
     Dosage: 250 UG, 2X/DAY
     Route: 048
     Dates: start: 20050922, end: 20080728
  2. TIKOSYN [Suspect]
     Indication: TACHYCARDIA
     Dosage: 125 UG, 2X/DAY
     Route: 048
     Dates: start: 20080729
  3. TIKOSYN [Suspect]
     Dosage: 250 UG, 2X/DAY
     Route: 048
     Dates: start: 20050901
  4. LOVAZA [Concomitant]
     Dosage: 1 MG, 1X/DAY
     Dates: start: 20080901
  5. MURO 128 [Concomitant]
     Indication: CORNEAL DISORDER
  6. ALKALOL [Concomitant]
     Indication: SINUS DISORDER
     Dosage: FREQUENCY: 2X/DAY,
  7. RHINOCORT [Concomitant]
     Dosage: FREQUENCY: 2X/DAY,
     Dates: start: 19990101
  8. CALCIUM [Concomitant]
     Route: 048
  9. CALCIUM/VITAMIN D/VITAMIN K [Concomitant]
     Dosage: 500 MG, 2X/DAY
     Route: 048
  10. ACETYLSALICYLIC ACID [Concomitant]
     Dosage: 81 MG, 1X/DAY
     Route: 048
  11. ACETYLSALICYLIC ACID [Concomitant]
     Dosage: 81 MG, UNK
  12. CHLORHEXIDINE GLUCONATE [Concomitant]
  13. DYNACIRC [Concomitant]
     Dosage: 5 MG, 1X/DAY
     Route: 048
  14. FEMARA [Concomitant]
     Dosage: 2.5 MG, 1X/DAY
     Dates: start: 20070401
  15. FEMARA [Concomitant]
     Dosage: 2.5 MG, UNK
  16. FUROSEMIDE [Concomitant]
     Indication: HYPERTENSION
     Dosage: 10 MG, 1X/DAY
  17. FUROSEMIDE [Concomitant]
     Dosage: 10 MG, UNK
  18. LIPITOR [Concomitant]
     Indication: HYPERLIPIDAEMIA
     Dosage: 80 MG, 1X/DAY
  19. LIPITOR [Concomitant]
     Dosage: 80 MG, UNK
  20. LISINOPRIL [Concomitant]
     Indication: HYPERTENSION
     Dosage: 5 MG, 2X/DAY
     Dates: start: 20090301
  21. METOPROLOL TARTRATE [Concomitant]
     Dosage: 25 MG, 2X/DAY
     Route: 048
  22. OMEPRAZOLE [Concomitant]
     Indication: ACIDOSIS
     Dosage: 20 MG, 1X/DAY
     Route: 048
  23. OMEPRAZOLE [Concomitant]
     Dosage: 20 MG, UNK
  24. ISPAGHULA [Concomitant]
  25. DIOVAN [Concomitant]
     Dosage: 40 MG, UNK

REACTIONS (8)
  - ACCIDENT [None]
  - ARRHYTHMIA SUPRAVENTRICULAR [None]
  - BLOOD CHOLESTEROL INCREASED [None]
  - BREAST CANCER [None]
  - DIZZINESS [None]
  - GASTROOESOPHAGEAL REFLUX DISEASE [None]
  - HYPERTENSION [None]
  - URINARY TRACT INFECTION [None]
